FAERS Safety Report 15587147 (Version 1)
Quarter: 2018Q4

REPORT INFORMATION
  Report Type: Spontaneous
  Country: US (occurrence: US)
  Receive Date: 20181106
  Receipt Date: 20181106
  Transmission Date: 20190205
  Serious: No
  Sender: FDA-Public Use
  Company Number: None

PATIENT
  Age: 44 Year
  Sex: Female
  Weight: 72 kg

DRUGS (9)
  1. CANDSARTAN [Concomitant]
  2. MRI [Concomitant]
  3. AJOVY [Suspect]
     Active Substance: FREMANEZUMAB-VFRM
     Indication: MIGRAINE
     Dosage: ?          QUANTITY:1 SYRINGE;OTHER FREQUENCY:ONCE MONTHLY;?
     Route: 030
     Dates: start: 20181003
  4. NALTREXONE [Concomitant]
     Active Substance: NALTREXONE
  5. MAGNESIUM [Concomitant]
     Active Substance: MAGNESIUM
  6. MAXALT [Concomitant]
     Active Substance: RIZATRIPTAN BENZOATE
  7. INDOCIN [Concomitant]
     Active Substance: INDOMETHACIN
  8. COENZYME Q10 [Concomitant]
     Active Substance: UBIDECARENONE
  9. TORADOL [Concomitant]
     Active Substance: KETOROLAC TROMETHAMINE

REACTIONS (5)
  - Chest discomfort [None]
  - Dyspnoea [None]
  - Dry mouth [None]
  - Constipation [None]
  - Influenza like illness [None]

NARRATIVE: CASE EVENT DATE: 20181106
